FAERS Safety Report 8301563-6 (Version None)
Quarter: 2012Q2

REPORT INFORMATION
  Report Type: 
  Country: None (occurrence: None)
  Receive Date: 20120420
  Receipt Date: 20120410
  Transmission Date: 20120825
  Serious: Yes (Death)
  Sender: FDA-Public Use
  Company Number: US-ROCHE-1059578

PATIENT
  Sex: Male
  Weight: 79.36 kg

DRUGS (5)
  1. PACLITAXEL [Suspect]
     Indication: NON-SMALL CELL LUNG CANCER
     Dosage: LAST DOSE PRIOR TO SAE 12-MAR-2012
     Route: 042
     Dates: start: 20120217
  2. VITAMIN B-12 [Concomitant]
     Dates: start: 20120131, end: 20120131
  3. AVASTIN [Suspect]
     Indication: NON-SMALL CELL LUNG CANCER
     Dosage: LAST DOSE PRIOR TO SAE 12-MAR-2012
     Route: 042
     Dates: start: 20120217
  4. FOLIC ACID [Concomitant]
     Dates: start: 20120131, end: 20120217
  5. CARBOPLATIN [Suspect]
     Indication: NON-SMALL CELL LUNG CANCER
     Dosage: LAST DOSE PRIOR TO SAE 12-MAR-2012
     Route: 042
     Dates: start: 20120217

REACTIONS (1)
  - DEATH [None]
